FAERS Safety Report 15409629 (Version 1)
Quarter: 2018Q3

REPORT INFORMATION
  Report Type: Spontaneous
  Country: US (occurrence: US)
  Receive Date: 20180920
  Receipt Date: 20180920
  Transmission Date: 20181010
  Serious: No
  Sender: FDA-Public Use
  Company Number: US-GLAXOSMITHKLINE-US2018167877

PATIENT
  Sex: Female

DRUGS (4)
  1. METOPROLOL SUCCINATE. [Concomitant]
     Active Substance: METOPROLOL SUCCINATE
  2. OXYGEN. [Concomitant]
     Active Substance: OXYGEN
  3. ANORO ELLIPTA [Suspect]
     Active Substance: UMECLIDINIUM BROMIDE\VILANTEROL TRIFENATATE
     Indication: CHRONIC OBSTRUCTIVE PULMONARY DISEASE
     Dosage: 1 PUFF(S), QD
     Route: 055
     Dates: start: 201808
  4. ALBUTEROL. [Concomitant]
     Active Substance: ALBUTEROL

REACTIONS (7)
  - Drug ineffective [Unknown]
  - Drug prescribing error [Unknown]
  - Hyperhidrosis [Unknown]
  - Dyspnoea [Unknown]
  - Middle insomnia [Unknown]
  - Labelled drug-drug interaction medication error [Unknown]
  - Cough [Unknown]

NARRATIVE: CASE EVENT DATE: 2018
